FAERS Safety Report 17235841 (Version 4)
Quarter: 2024Q4

REPORT INFORMATION
  Report Type: Spontaneous
  Country: JP (occurrence: JP)
  Receive Date: 20200106
  Receipt Date: 20241209
  Transmission Date: 20250115
  Serious: Yes (Hospitalization, Other)
  Sender: ACCORD
  Company Number: JP-ACCORD-169212

PATIENT
  Age: 27 Year
  Sex: Female

DRUGS (4)
  1. DOCETAXEL [Suspect]
     Active Substance: DOCETAXEL
     Indication: Triple negative breast cancer
     Dosage: (106 MG, 75 MG/M2)
  2. CYCLOPHOSPHAMIDE [Suspect]
     Active Substance: CYCLOPHOSPHAMIDE
     Indication: Triple negative breast cancer
     Dosage: DOSE-DENSE, 4 CYCLES CPA (840 MG, 600 MG/M2)
  3. EPIRUBICIN [Suspect]
     Active Substance: EPIRUBICIN
     Indication: Triple negative breast cancer
     Dosage: DOSE-DENSE, 4 CYCLES OF EPI (126 MG, 90 MG/M2)
  4. PREDNISOLONE [Suspect]
     Active Substance: PREDNISOLONE
     Indication: Triple negative breast cancer
     Dosage: AVERAGED 17.14 MG / DAY IN TERMS OF PSL

REACTIONS (1)
  - Pneumocystis jirovecii pneumonia [Recovered/Resolved]
